FAERS Safety Report 25287548 (Version 1)
Quarter: 2025Q2

REPORT INFORMATION
  Report Type: Spontaneous
  Country: US (occurrence: None)
  Receive Date: 20250508
  Receipt Date: 20250508
  Transmission Date: 20250717
  Serious: No
  Sender: FDA-CTU
  Company Number: None

PATIENT
  Age: 34 Year
  Sex: Female
  Weight: 79.65 kg

DRUGS (7)
  1. GABAPENTIN [Suspect]
     Active Substance: GABAPENTIN
     Indication: Neuralgia
     Route: 048
     Dates: start: 20250427, end: 20250505
  2. GABAPENTIN [Suspect]
     Active Substance: GABAPENTIN
     Indication: Anxiety
  3. Advair, [Concomitant]
  4. LORAZEPAM [Concomitant]
     Active Substance: LORAZEPAM
  5. trizepatide [Concomitant]
  6. Magenisum Glycinate, [Concomitant]
  7. DIETARY SUPPLEMENT [Concomitant]
     Active Substance: DIETARY SUPPLEMENT

REACTIONS (1)
  - Fixed eruption [None]

NARRATIVE: CASE EVENT DATE: 20250503
